FAERS Safety Report 5612368-9 (Version None)
Quarter: 2008Q1

REPORT INFORMATION
  Report Type: 
  Country: None (occurrence: None)
  Receive Date: 20080204
  Receipt Date: 20080124
  Transmission Date: 20080703
  Serious: Yes (Hospitalization)
  Sender: FDA-Public Use
  Company Number: US-TYCO HEALTHCARE/MALLINCKRODT-T200800089

PATIENT

DRUGS (25)
  1. MORPHINE [Suspect]
     Indication: COMPLEX REGIONAL PAIN SYNDROME
     Dosage: 50 MG/ML, QD
     Route: 037
  2. MORPHINE [Suspect]
     Dosage: 21 MG, QD
     Route: 039
  3. MORPHINE [Suspect]
     Dosage: UNK, BOLUS
     Route: 037
  4. MORPHINE [Suspect]
     Dosage: 15 MG, BOLUS
     Route: 039
  5. MORPHINE [Suspect]
     Dosage: 15 MG, BOLUS
     Route: 039
  6. MORPHINE [Suspect]
     Dosage: 15 MG, BOLUS
     Route: 039
  7. MORPHINE [Suspect]
     Dosage: 15 MG, BOLUS
     Route: 039
  8. MORPHINE [Suspect]
     Dosage: 15 MG, BOLUS
     Route: 039
  9. CLONIDINE [Suspect]
     Indication: COMPLEX REGIONAL PAIN SYNDROME
     Dosage: 500 UG, QD
     Route: 039
  10. CLONIDINE [Suspect]
     Dosage: 200 UG, QD
     Route: 039
  11. CLONIDINE [Suspect]
     Dosage: UNK, BOLUS
     Route: 037
  12. CLONIDINE [Suspect]
     Dosage: 60 UG, BOLUS
     Route: 039
  13. CLONIDINE [Suspect]
     Dosage: 60 UG, BOLUS
     Route: 039
  14. CLONIDINE [Suspect]
     Dosage: 60 UG, BOLUS
     Route: 039
  15. CLONIDINE [Suspect]
     Dosage: 60 UG, BOLUS
     Route: 039
  16. CLONIDINE [Suspect]
     Dosage: 60 UG, BOLUS
     Route: 039
  17. CLONIDINE [Suspect]
     Dosage: 400 UG/ML QD
     Route: 037
  18. BUPIVACAINE [Suspect]
     Indication: COMPLEX REGIONAL PAIN SYNDROME
     Dosage: 4.2 MG, QD
     Route: 039
  19. BUPIVACAINE [Suspect]
     Dosage: UNK, BOLUS
     Route: 039
  20. BUPIVACAINE [Suspect]
     Dosage: 3 MG, BOLUS
     Route: 037
  21. BUPIVACAINE [Suspect]
     Dosage: 3 MG, BOLUS
     Route: 037
  22. BUPIVACAINE [Suspect]
     Dosage: 3 MG, BOLUS
     Route: 037
  23. BUPIVACAINE [Suspect]
     Dosage: 3 MG, BOLUS
     Route: 037
  24. BUPIVACAINE [Suspect]
     Dosage: 3 MG, BOLUS
     Route: 037
  25. BUPIVACAINE [Suspect]
     Dosage: 10 MG/ML, QD
     Route: 037

REACTIONS (2)
  - HYPERAESTHESIA [None]
  - MYOCLONUS [None]
